FAERS Safety Report 11756197 (Version 6)
Quarter: 2019Q2

REPORT INFORMATION
  Report Type: Spontaneous
  Country: US (occurrence: US)
  Receive Date: 20151119
  Receipt Date: 20190426
  Transmission Date: 20190711
  Serious: Yes (Hospitalization, Other)
  Sender: FDA-Public Use
  Company Number: US-BIOMARINAP-US-2015-108140

PATIENT
  Age: 3 Year
  Sex: Female

DRUGS (2)
  1. ALDURAZYME [Suspect]
     Active Substance: LARONIDASE
     Indication: MUCOPOLYSACCHARIDOSIS I
     Dosage: UNK UNK, QW
     Route: 041
     Dates: start: 20150827
  2. ALDURAZYME [Suspect]
     Active Substance: LARONIDASE
     Dosage: UNK
     Route: 041

REACTIONS (7)
  - Vomiting [Recovering/Resolving]
  - Device related infection [Not Recovered/Not Resolved]
  - Lethargy [Unknown]
  - Abdominal pain upper [Recovering/Resolving]
  - Hypercalcaemia [Not Recovered/Not Resolved]
  - Serratia infection [Not Recovered/Not Resolved]
  - Appendicitis [Recovering/Resolving]

NARRATIVE: CASE EVENT DATE: 20180104
